FAERS Safety Report 16851157 (Version 3)
Quarter: 2019Q4

REPORT INFORMATION
  Report Type: Spontaneous
  Country: US (occurrence: US)
  Receive Date: 20190925
  Receipt Date: 20191112
  Transmission Date: 20200122
  Serious: Yes (Death, Hospitalization)
  Sender: FDA-Public Use
  Company Number: US-JNJFOC-20190928550

PATIENT
  Age: 71 Year
  Sex: Male

DRUGS (1)
  1. IMBRUVICA [Suspect]
     Active Substance: IBRUTINIB
     Indication: MARGINAL ZONE LYMPHOMA
     Dosage: 560 MG, QD
     Route: 048
     Dates: end: 20190917

REACTIONS (2)
  - Pneumonia pseudomonal [Fatal]
  - Disease progression [Fatal]

NARRATIVE: CASE EVENT DATE: 20190919
